FAERS Safety Report 9555316 (Version 1)
Quarter: 2013Q3

REPORT INFORMATION
  Report Type: Spontaneous
  Country: US (occurrence: None)
  Receive Date: 20130724
  Receipt Date: 20130724
  Transmission Date: 20140515
  Serious: Yes (Other)
  Sender: FDA-Public Use
  Company Number: PHEH2013US005626

PATIENT
  Sex: Female

DRUGS (4)
  1. GILENYA (FINGOLIMOD) CAPSULE [Suspect]
     Indication: MULTIPLE SCLEROSIS
     Route: 048
     Dates: start: 20120320, end: 20130302
  2. VALTREX (VALACICLOVIR HYDROCHLORIDE) [Concomitant]
  3. AMPYRA (FAMPRIDINE) TABLET, 10MG [Concomitant]
  4. FLEXIN (ORPHENADRINE CITRATE) [Concomitant]

REACTIONS (1)
  - Musculoskeletal stiffness [None]
